APPROVED DRUG PRODUCT: CARBOPLATIN
Active Ingredient: CARBOPLATIN
Strength: 50MG/5ML (10MG/ML)
Dosage Form/Route: INJECTABLE;INTRAVENOUS
Application: A078280 | Product #001 | TE Code: AP
Applicant: SANDOZ INC
Approved: May 8, 2008 | RLD: No | RS: No | Type: RX